FAERS Safety Report 5225662-0 (Version None)
Quarter: 2007Q1

REPORT INFORMATION
  Report Type: 
  Country: None (occurrence: None)
  Receive Date: 20061201
  Receipt Date: 20061030
  Transmission Date: 20070707
  Serious: No
  Sender: FDA-Public Use
  Company Number: US200610005440

PATIENT
  Age: 81 Year
  Sex: Female

DRUGS (4)
  1. CYMBALTA [Suspect]
     Indication: NEURALGIA
     Dosage: 60 MG
     Dates: start: 20060101
  2. CHOLESTEROL (CHOLESTEROL) [Concomitant]
  3. PREMARIN [Concomitant]
  4. THYROID TAB [Concomitant]

REACTIONS (10)
  - CRYING [None]
  - DISORIENTATION [None]
  - DRUG WITHDRAWAL SYNDROME [None]
  - GAIT DISTURBANCE [None]
  - MENTAL IMPAIRMENT [None]
  - MOOD ALTERED [None]
  - ROAD TRAFFIC ACCIDENT [None]
  - SPEECH DISORDER [None]
  - TREMOR [None]
  - VOMITING [None]
